FAERS Safety Report 7936741-9 (Version None)
Quarter: 2011Q4

REPORT INFORMATION
  Report Type: 
  Country: None (occurrence: None)
  Receive Date: 20111123
  Receipt Date: 20111121
  Transmission Date: 20120403
  Serious: Yes (Hospitalization, Other)
  Sender: FDA-Public Use
  Company Number: US-VERTEX PHARMACEUTICALS INC.-AE-2011-003779

PATIENT
  Sex: Female
  Weight: 68.1 kg

DRUGS (4)
  1. PROCIT [Concomitant]
     Dates: start: 20110501
  2. INCIVEK [Suspect]
     Indication: HEPATITIS C
     Dates: start: 20111010, end: 20111116
  3. RIBAVIRIN [Concomitant]
     Indication: HEPATITIS C
     Dates: start: 20110329, end: 20111116
  4. PEGASYS [Concomitant]
     Indication: HEPATITIS C
     Route: 058
     Dates: start: 20110329, end: 20111116

REACTIONS (4)
  - BODY TEMPERATURE INCREASED [None]
  - CYSTITIS [None]
  - MIGRAINE [None]
  - HAEMOGLOBIN DECREASED [None]
